FAERS Safety Report 7636774-6 (Version None)
Quarter: 2011Q3

REPORT INFORMATION
  Report Type: 
  Country: None (occurrence: None)
  Receive Date: 20110719
  Receipt Date: 20110702
  Transmission Date: 20111222
  Serious: Yes (Hospitalization)
  Sender: FDA-Public Use
  Company Number: GER/USA/11/0018757

PATIENT
  Age: 11 Year
  Sex: Male
  Weight: 35.7 kg

DRUGS (10)
  1. UNSPECIFIED ANTICHOLINERGIC (ANTICHOLINERGICS) [Suspect]
     Indication: PRODUCT USED FOR UNKNOWN INDICATION
  2. UNSPECIFIED ANTICHOLINESTERASE (ANTICHOLINESTERASES) [Suspect]
     Indication: PRODUCT USED FOR UNKNOWN INDICATION
  3. ISOFLURANE [Suspect]
     Indication: PRODUCT USED FOR UNKNOWN INDICATION
  4. SEVOFLURANE [Suspect]
     Indication: PRODUCT USED FOR UNKNOWN INDICATION
  5. DESFLURANE [Suspect]
     Indication: PRODUCT USED FOR UNKNOWN INDICATION
  6. PROPOFOL [Concomitant]
  7. PROPRANOLOL [Concomitant]
  8. PENTOTHAL [Concomitant]
  9. ONDANSETRON [Suspect]
     Indication: PRODUCT USED FOR UNKNOWN INDICATION
     Dosage: INTRAVENOUS
     Route: 042
  10. PANCURONIUM (PANCURONIUM) [Concomitant]

REACTIONS (1)
  - TORSADE DE POINTES [None]
